FAERS Safety Report 6371581-6 (Version None)
Quarter: 2009Q3

REPORT INFORMATION
  Report Type: 
  Country: None (occurrence: None)
  Receive Date: 20090923
  Receipt Date: 20081016
  Transmission Date: 20100115
  Serious: Yes (Hospitalization)
  Sender: FDA-Public Use
  Company Number: US-ASTRAZENECA-2007UW25987

PATIENT
  Age: 35 Year
  Sex: Female
  Weight: 98.9 kg

DRUGS (5)
  1. SEROQUEL [Suspect]
     Indication: BIPOLAR DISORDER
     Route: 048
     Dates: start: 19970101
  2. SEROQUEL [Suspect]
     Dosage: 300 TO 400 MG DAILY
     Route: 048
  3. CHOLESTEROL MEDICATION [Concomitant]
  4. ASTHMA MEDICATIONS [Concomitant]
  5. LITHIUM [Concomitant]

REACTIONS (9)
  - DEHYDRATION [None]
  - DIABETES MELLITUS [None]
  - DIARRHOEA [None]
  - FATIGUE [None]
  - HEADACHE [None]
  - INSOMNIA [None]
  - MUSCLE TWITCHING [None]
  - VOMITING [None]
  - WEIGHT INCREASED [None]
